FAERS Safety Report 13151723 (Version 1)
Quarter: 2017Q1

REPORT INFORMATION
  Report Type: Spontaneous
  Country: IT (occurrence: IT)
  Receive Date: 20170125
  Receipt Date: 20170125
  Transmission Date: 20170428
  Serious: Yes (Other)
  Sender: FDA-Public Use
  Company Number: IT-JNJFOC-20170118146

PATIENT
  Age: 35 Year
  Sex: Female
  Weight: 44 kg

DRUGS (4)
  1. STILNOX [Suspect]
     Active Substance: ZOLPIDEM TARTRATE
     Indication: ANXIETY
     Route: 048
     Dates: start: 20160901
  2. HALDOL [Suspect]
     Active Substance: HALOPERIDOL
     Indication: ANXIETY
     Route: 048
     Dates: start: 20160901, end: 20161116
  3. AKINETON [Suspect]
     Active Substance: BIPERIDEN HYDROCHLORIDE
     Indication: ADJUVANT THERAPY
     Route: 048
     Dates: start: 20161220
  4. HALDOL [Suspect]
     Active Substance: HALOPERIDOL
     Indication: ANXIETY
     Route: 048
     Dates: start: 20161120

REACTIONS (6)
  - Tachycardia [Not Recovered/Not Resolved]
  - Dyskinesia [Not Recovered/Not Resolved]
  - Agitation [Not Recovered/Not Resolved]
  - Nightmare [Not Recovered/Not Resolved]
  - Amimia [Not Recovered/Not Resolved]
  - Insomnia [Not Recovered/Not Resolved]
